FAERS Safety Report 8115480-8 (Version None)
Quarter: 2012Q1

REPORT INFORMATION
  Report Type: 
  Country: None (occurrence: None)
  Receive Date: 20120201
  Receipt Date: 20120201
  Transmission Date: 20120608
  Serious: Yes (Other)
  Sender: FDA-Public Use
  Company Number: AUR-APL-2011-06337

PATIENT
  Age: 62 Year
  Sex: Female

DRUGS (3)
  1. ESTRADIOL [Concomitant]
  2. LIPITOR [Concomitant]
  3. ALENDRONIC ACID (ALENDORIC ACID) (ALENDRONIC ACID, ALENDRONIC ACID) [Suspect]
     Indication: OSTEOPENIA
     Dosage: (70 MG), ORAL
     Route: 048

REACTIONS (2)
  - HYPOAESTHESIA [None]
  - GASTROOESOPHAGEAL REFLUX DISEASE [None]
